FAERS Safety Report 12855986 (Version 1)
Quarter: 2016Q4

REPORT INFORMATION
  Report Type: Spontaneous
  Country: US (occurrence: US)
  Receive Date: 20161017
  Receipt Date: 20161017
  Transmission Date: 20170207
  Serious: No
  Sender: FDA-Public Use
  Company Number: None

PATIENT
  Age: 62 Year
  Sex: Female
  Weight: 51.3 kg

DRUGS (12)
  1. DILTIAZEM. [Concomitant]
     Active Substance: DILTIAZEM
  2. VITAMIN D3 [Concomitant]
     Active Substance: CHOLECALCIFEROL
  3. CO-Q10 [Concomitant]
  4. ESOMEPRAZOLE MAG DR 40MG TEVA [Suspect]
     Active Substance: ESOMEPRAZOLE MAGNESIUM
     Indication: GASTROOESOPHAGEAL REFLUX DISEASE
     Dosage: ?          QUANTITY:1 CAPSULE(S);?
     Route: 048
  5. EPLERENONE. [Concomitant]
     Active Substance: EPLERENONE
  6. CALCIUM WITH K AND D [Concomitant]
  7. ESOMEPRAZOLE MAG DR 40MG TEVA [Suspect]
     Active Substance: ESOMEPRAZOLE MAGNESIUM
     Indication: SCLERODERMA
     Dosage: ?          QUANTITY:1 CAPSULE(S);?
     Route: 048
  8. SELENIUM [Concomitant]
     Active Substance: SELENIUM
  9. FISH OIL [Concomitant]
     Active Substance: FISH OIL
  10. ENALAPRIL [Concomitant]
     Active Substance: ENALAPRIL
  11. VITAMIN B12 [Concomitant]
     Active Substance: CYANOCOBALAMIN
  12. OOT CHLORIDE [Concomitant]

REACTIONS (1)
  - Product substitution issue [None]

NARRATIVE: CASE EVENT DATE: 20160301
